FAERS Safety Report 17991285 (Version 1)
Quarter: 2020Q3

REPORT INFORMATION
  Report Type: Report from Study
  Country: GR (occurrence: GR)
  Receive Date: 20200707
  Receipt Date: 20200707
  Transmission Date: 20201103
  Serious: Yes (Other)
  Sender: FDA-Public Use
  Company Number: GR-NOVOPROD-728252

PATIENT
  Age: 73 Year
  Sex: Male
  Weight: 100 kg

DRUGS (2)
  1. LANTUS SOLOSTAR [Suspect]
     Active Substance: INSULIN GLARGINE
     Indication: TYPE 2 DIABETES MELLITUS
     Dosage: 76.0,U,ONCE PER DAY
     Route: 058
     Dates: start: 20190204, end: 20200428
  2. NOVORAPID [Suspect]
     Active Substance: INSULIN ASPART
     Indication: TYPE 2 DIABETES MELLITUS
     Dosage: 20.0,U,3 TIMES PER DAY
     Route: 058
     Dates: start: 20190502, end: 20200429

REACTIONS (1)
  - Diabetic retinopathy [Recovered/Resolved]

NARRATIVE: CASE EVENT DATE: 20200507
